FAERS Safety Report 16011887 (Version 1)
Quarter: 2019Q1

REPORT INFORMATION
  Report Type: Spontaneous
  Country: US (occurrence: US)
  Receive Date: 20190226
  Receipt Date: 20190226
  Transmission Date: 20190418
  Serious: No
  Sender: FDA-Public Use
  Company Number: None

PATIENT
  Age: 26 Year
  Sex: Female
  Weight: 54.7 kg

DRUGS (1)
  1. RITUXIMAB. [Suspect]
     Active Substance: RITUXIMAB
     Indication: SYSTEMIC LUPUS ERYTHEMATOSUS
     Dosage: ?          OTHER FREQUENCY:Q14D X 2 DOSES;?
     Route: 042
     Dates: start: 20190226, end: 20190226

REACTIONS (2)
  - Pruritus generalised [None]
  - Infusion related reaction [None]

NARRATIVE: CASE EVENT DATE: 20190226
